FAERS Safety Report 4878027-5 (Version None)
Quarter: 2006Q1

REPORT INFORMATION
  Report Type: 
  Country: None (occurrence: None)
  Receive Date: 20060111
  Receipt Date: 20060109
  Transmission Date: 20060701
  Serious: Yes (Death)
  Sender: FDA-Public Use
  Company Number: 2006CG00060

PATIENT
  Age: 20 Day
  Sex: Male
  Weight: 0.8 kg

DRUGS (8)
  1. NEXIUM [Suspect]
     Route: 048
     Dates: start: 20050727
  2. CAFFEINE [Suspect]
     Route: 048
     Dates: start: 20050721
  3. FERROSTRANE [Suspect]
     Route: 048
     Dates: start: 20050728
  4. UVESTEROL D [Suspect]
     Route: 048
     Dates: start: 20050726
  5. DOPRAM [Concomitant]
     Route: 042
     Dates: start: 20050701, end: 20050726
  6. DOPRAM [Concomitant]
     Route: 048
     Dates: start: 20050726
  7. PERIDYS [Concomitant]
     Dates: start: 20050723
  8. GAVISCON [Concomitant]
     Dates: start: 20050723

REACTIONS (5)
  - DEATH NEONATAL [None]
  - GENERAL PHYSICAL HEALTH DETERIORATION [None]
  - HAEMODYNAMIC INSTABILITY [None]
  - NECROTISING COLITIS [None]
  - STAPHYLOCOCCAL INFECTION [None]
